FAERS Safety Report 4939076-1 (Version None)
Quarter: 2006Q1

REPORT INFORMATION
  Report Type: 
  Country: None (occurrence: None)
  Receive Date: 20060306
  Receipt Date: 20060222
  Transmission Date: 20060701
  Serious: Yes (Hospitalization)
  Sender: FDA-Public Use
  Company Number: 222584

PATIENT
  Age: 59 Year
  Sex: Female
  Weight: 53.5 kg

DRUGS (17)
  1. AVASTIN [Suspect]
     Indication: BREAST CANCER METASTATIC
     Dosage: 75 MG/M2, Q3W, INTRAVENOUS
     Route: 042
     Dates: start: 20051011, end: 20060124
  2. TAXOTERE [Suspect]
     Indication: BREAST CANCER METASTATIC
     Dosage: 15 MG/M2, Q3W, INTRAVENOUS
     Route: 042
     Dates: start: 20051011, end: 20060124
  3. KLOR-CON [Concomitant]
  4. TOPROL-XL [Concomitant]
  5. DIOVAN HCT [Concomitant]
  6. MVT (MULTIVITAMINS NOS) [Concomitant]
  7. ACETAMINOPHEN [Concomitant]
  8. ECHINACEA (ECHINACEA) [Concomitant]
  9. VITAMIN E [Concomitant]
  10. LOSCALCON (CALCIUM CARBONATE) [Concomitant]
  11. VITAMIN B12 [Concomitant]
  12. ZOMETA [Concomitant]
  13. NEULASTA [Concomitant]
  14. SENOKOT [Concomitant]
  15. ALOXI (PALONOSETRON) [Concomitant]
  16. DECADRON [Concomitant]
  17. ANUSOL-HC NOS (HYDROCORTISONE ACETATE, ZINIC SULFATE) [Concomitant]

REACTIONS (5)
  - COLITIS ISCHAEMIC [None]
  - DYSARTHRIA [None]
  - HAEMORRHOIDS [None]
  - HYPOAESTHESIA [None]
  - INAPPROPRIATE ANTIDIURETIC HORMONE SECRETION [None]
